FAERS Safety Report 8649629 (Version 4)
Quarter: 2012Q4

REPORT INFORMATION
  Report Type: 
  Country: US (occurrence: US)
  Receive Date: 20120705
  Receipt Date: 20121019
  Transmission Date: 20130627
  Serious: Yes (Hospitalization, Other)
  Sender: FDA-Public Use
  Company Number: US-PFIZER INC-2012156724

PATIENT
  Age: 63 Year
  Sex: Male

DRUGS (2)
  1. XALKORI [Suspect]
     Indication: NON-SMALL CELL LUNG CANCER
     Dosage: 250 mg, 2x/day
     Route: 048
     Dates: start: 20120516, end: 20120710
  2. XALKORI [Suspect]
     Dosage: 250 mg, 2x/day
     Dates: start: 20120516

REACTIONS (6)
  - Pulmonary oedema [Unknown]
  - Constipation [Not Recovered/Not Resolved]
  - Insomnia [Not Recovered/Not Resolved]
  - Hot flush [Unknown]
  - Disease progression [Unknown]
  - Non-small cell lung cancer [Unknown]
